FAERS Safety Report 8513074 (Version 3)
Quarter: 2012Q4

REPORT INFORMATION
  Report Type: 
  Country: US (occurrence: US)
  Receive Date: 20120413
  Receipt Date: 20121119
  Transmission Date: 20130627
  Serious: Yes (Hospitalization)
  Sender: FDA-Public Use
  Company Number: US-ELI_LILLY_AND_COMPANY-US201204001973

PATIENT
  Sex: Male

DRUGS (3)
  1. FORTEO [Suspect]
     Indication: OSTEOPOROSIS
     Dosage: 20 ug, qd
     Dates: start: 2010, end: 2010
  2. FORTEO [Suspect]
     Dosage: 20 ug, qd
     Dates: start: 201203
  3. FORTEO [Suspect]
     Dosage: 20 ug, qd
     Route: 065

REACTIONS (10)
  - Spinal fracture [Unknown]
  - Spinal fusion surgery [Unknown]
  - Dizziness [Unknown]
  - Nausea [Unknown]
  - Injection site rash [Recovering/Resolving]
  - Rash macular [Unknown]
  - Injection site erythema [Recovering/Resolving]
  - Arthralgia [Not Recovered/Not Resolved]
  - Bone pain [Unknown]
  - Myalgia [Unknown]
